FAERS Safety Report 12952131 (Version 2)
Quarter: 2017Q2

REPORT INFORMATION
  Report Type: Spontaneous
  Country: US (occurrence: US)
  Receive Date: 20161117
  Receipt Date: 20170517
  Transmission Date: 20170830
  Serious: No
  Sender: FDA-Public Use
  Company Number: US-SA-2016SA195373

PATIENT
  Age: 56 Year
  Sex: Female

DRUGS (7)
  1. FLEXPEN [Concomitant]
     Active Substance: UNSPECIFIED INGREDIENT
  2. GLYBURIDE. [Concomitant]
     Active Substance: GLYBURIDE
  3. SOLOSTAR [Concomitant]
     Active Substance: DEVICE
     Indication: TYPE 2 DIABETES MELLITUS
     Dates: start: 20161019
  4. TOUJEO [Suspect]
     Active Substance: INSULIN GLARGINE
     Indication: TYPE 2 DIABETES MELLITUS
     Dosage: DOSE:24 UNIT(S)
     Route: 065
     Dates: start: 20161019
  5. METFORMIN [Concomitant]
     Active Substance: METFORMIN HYDROCHLORIDE
  6. GLYBURIDE. [Concomitant]
     Active Substance: GLYBURIDE
  7. LEVEMIR [Concomitant]
     Active Substance: INSULIN DETEMIR

REACTIONS (7)
  - Dizziness [Unknown]
  - Impaired driving ability [Unknown]
  - Drug dose omission [Unknown]
  - Feeling drunk [Unknown]
  - Blood glucose increased [Unknown]
  - Impaired work ability [Unknown]
  - Vertigo [Unknown]

NARRATIVE: CASE EVENT DATE: 201610
